FAERS Safety Report 10011602 (Version 1)
Quarter: 2014Q1

REPORT INFORMATION
  Report Type: Spontaneous
  Country: CH (occurrence: CH)
  Receive Date: 20140314
  Receipt Date: 20140314
  Transmission Date: 20141002
  Serious: Yes (Hospitalization)
  Sender: FDA-Public Use
  Company Number: PHHY2014CH031033

PATIENT
  Age: 70 Year
  Sex: Female

DRUGS (2)
  1. ESTRADOT [Suspect]
     Indication: MENOPAUSE
     Dosage: 25 MG, TWICE WEEKLY
     Route: 062
  2. ANTIHYPERTENSIVES [Concomitant]
     Indication: HYPERTENSION

REACTIONS (3)
  - Varicose vein [Not Recovered/Not Resolved]
  - Memory impairment [Not Recovered/Not Resolved]
  - Oedema [Not Recovered/Not Resolved]
